FAERS Safety Report 10003868 (Version 1)
Quarter: 2014Q1

REPORT INFORMATION
  Report Type: Report from Study
  Country: US (occurrence: US)
  Receive Date: 20140312
  Receipt Date: 20140312
  Transmission Date: 20141002
  Serious: No
  Sender: FDA-Public Use
  Company Number: US-ABBVIE-13P-163-1154952-00

PATIENT
  Sex: Male

DRUGS (2)
  1. DEPAKOTE [Suspect]
     Indication: PRODUCT USED FOR UNKNOWN INDICATION
     Dosage: 1500 MILLIGRAMS DAILY, ONE TABLET IN THE MORNING AND TWO AT NIGHT
     Route: 048
     Dates: end: 20130927
  2. DEPAKOTE [Suspect]
     Dosage: 750 MILLIGRAMS DAILY, ONE TABLET IN MORNING AND 1/2 TABLET AT NIGHT
     Dates: start: 20130927

REACTIONS (1)
  - Dizziness [Not Recovered/Not Resolved]
